FAERS Safety Report 4415213-2 (Version None)
Quarter: 2004Q3

REPORT INFORMATION
  Report Type: 
  Country: None (occurrence: None)
  Receive Date: 20040730
  Receipt Date: 20040707
  Transmission Date: 20050211
  Serious: Yes (Hospitalization, Other)
  Sender: FDA-Public Use
  Company Number: 2004EN000073

PATIENT
  Age: 62 Year
  Sex: Male

DRUGS (6)
  1. ABELCET [Suspect]
     Indication: LEISHMANIASIS
     Dosage: SEE IMAGE
     Route: 042
  2. ABELCET [Suspect]
     Indication: LEISHMANIASIS
     Dosage: SEE IMAGE
     Route: 042
  3. CYCLOSPORINE [Concomitant]
  4. AZATHIOPRINE [Concomitant]
  5. METHYLPREDNISOLONE [Concomitant]
  6. ACETAMINOPHEN [Concomitant]

REACTIONS (11)
  - ANOREXIA [None]
  - ASTHENIA [None]
  - CHILLS [None]
  - DEEP VEIN THROMBOSIS [None]
  - HAEMATOTOXICITY [None]
  - HEPATOSPLENOMEGALY [None]
  - INFUSION RELATED REACTION [None]
  - PANCYTOPENIA [None]
  - PYREXIA [None]
  - THERAPY NON-RESPONDER [None]
  - WEIGHT DECREASED [None]
